FAERS Safety Report 8056400-4 (Version None)
Quarter: 2012Q1

REPORT INFORMATION
  Report Type: 
  Country: None (occurrence: None)
  Receive Date: 20120119
  Receipt Date: 20120111
  Transmission Date: 20120608
  Serious: Yes (Other)
  Sender: FDA-Public Use
  Company Number: US-BAYER-2011-080560

PATIENT
  Age: 31 Year
  Sex: Female
  Weight: 83.9 kg

DRUGS (3)
  1. DROSPIRENONE AND ETHINYL ESTRADIOL [Suspect]
     Indication: PREMENSTRUAL SYNDROME
     Dosage: UNK
     Dates: start: 20090501, end: 20090701
  2. CALCIUM [Concomitant]
     Dosage: 600 MG, QD
  3. PROPRANOLOL [Concomitant]
     Indication: MIGRAINE
     Dosage: 10 MG, QD

REACTIONS (4)
  - EMOTIONAL DISTRESS [None]
  - PAIN [None]
  - INJURY [None]
  - DEEP VEIN THROMBOSIS [None]
